FAERS Safety Report 5598702-7 (Version None)
Quarter: 2008Q1

REPORT INFORMATION
  Report Type: 
  Country: None (occurrence: None)
  Receive Date: 20080122
  Receipt Date: 20080110
  Transmission Date: 20080703
  Serious: Yes (Other)
  Sender: FDA-Public Use
  Company Number: NL-ELI_LILLY_AND_COMPANY-NL200711005049

PATIENT
  Sex: Male

DRUGS (5)
  1. CYMBALTA [Suspect]
     Indication: DEPRESSION
     Dosage: 30 MG, 2/D
     Route: 048
     Dates: start: 20070423
  2. CYMBALTA [Suspect]
     Dosage: 30 MG, DAILY (1/D)
     Route: 048
  3. ACENOCOUMAROL [Concomitant]
     Indication: THROMBOSIS
     Dosage: 1 MG, UNKNOWN
     Route: 065
     Dates: start: 20070522, end: 20071021
  4. FRAXODI [Concomitant]
     Indication: THROMBOSIS
     Dosage: 1/D FOR 10 DAYS
     Route: 058
     Dates: start: 20070522, end: 20070601
  5. RIZATRIPTAN BENZOATE [Concomitant]
     Indication: MIGRAINE
     Dosage: 10 MG, AS NEEDED

REACTIONS (5)
  - BLOOD CHOLESTEROL INCREASED [None]
  - HYPERGLYCAEMIA [None]
  - THROMBOSIS [None]
  - TYPE 2 DIABETES MELLITUS [None]
  - WEIGHT FLUCTUATION [None]
